FAERS Safety Report 18601078 (Version 1)
Quarter: 2020Q4

REPORT INFORMATION
  Report Type: Spontaneous
  Country: US (occurrence: US)
  Receive Date: 20201210
  Receipt Date: 20201210
  Transmission Date: 20210114
  Serious: No
  Sender: FDA-Public Use
  Company Number: None

PATIENT
  Age: 68 Year
  Sex: Female
  Weight: 52.65 kg

DRUGS (15)
  1. ISOSORBIDE MONONITRATE ER [Concomitant]
     Active Substance: ISOSORBIDE MONONITRATE
  2. METOPROLOL SUCCINATE ER [Concomitant]
     Active Substance: METOPROLOL SUCCINATE
  3. LEVO-T [Concomitant]
     Active Substance: LEVOTHYROXINE SODIUM
  4. LEVAQUIN [Concomitant]
     Active Substance: LEVOFLOXACIN
  5. RANOLAZINE ER [Concomitant]
     Active Substance: RANOLAZINE
  6. ELIQUIS [Concomitant]
     Active Substance: APIXABAN
  7. SERTRALINE HCL [Concomitant]
     Active Substance: SERTRALINE HYDROCHLORIDE
  8. SIMVASTATIN. [Concomitant]
     Active Substance: SIMVASTATIN
  9. NOVOLOG [Concomitant]
     Active Substance: INSULIN ASPART
  10. LANTUS SOLOSTAR [Concomitant]
     Active Substance: INSULIN GLARGINE
  11. LYRICA [Concomitant]
     Active Substance: PREGABALIN
  12. CAPECITABINE 500 MG TABLET [Concomitant]
     Active Substance: CAPECITABINE
  13. VERZENIO [Suspect]
     Active Substance: ABEMACICLIB
     Indication: BREAST CANCER
     Route: 048
     Dates: start: 20201201, end: 20201210
  14. ASPIRIN 81 [Concomitant]
     Active Substance: ASPIRIN
  15. PLAVIX [Concomitant]
     Active Substance: CLOPIDOGREL BISULFATE

REACTIONS (1)
  - Disease progression [None]

NARRATIVE: CASE EVENT DATE: 20201210
